FAERS Safety Report 9659480 (Version 1)
Quarter: 2013Q4

REPORT INFORMATION
  Report Type: Spontaneous
  Country: IT (occurrence: IT)
  Receive Date: 20131031
  Receipt Date: 20131031
  Transmission Date: 20140711
  Serious: Yes (Hospitalization)
  Sender: FDA-Public Use
  Company Number: PHHY2013IT122992

PATIENT
  Age: 61 Year
  Sex: Male

DRUGS (2)
  1. ZOMETA [Suspect]
     Indication: LUNG CANCER METASTATIC
     Dosage: 1 POSOLOGIC UNIT, MONTHLY
     Route: 042
     Dates: start: 20130101, end: 20130701
  2. TARCEVA [Concomitant]
     Dosage: 150 MG

REACTIONS (2)
  - Osteonecrosis of jaw [Not Recovered/Not Resolved]
  - Osteitis [Not Recovered/Not Resolved]
